FAERS Safety Report 9799648 (Version 2)
Quarter: 2015Q3

REPORT INFORMATION
  Report Type: Spontaneous
  Country: US (occurrence: US)
  Receive Date: 20140106
  Receipt Date: 20150806
  Transmission Date: 20151125
  Serious: No
  Sender: FDA-Public Use
  Company Number: US-GILEAD-2010-0032048

PATIENT
  Age: 74 Year
  Sex: Female
  Weight: 73.94 kg

DRUGS (33)
  1. LETAIRIS [Suspect]
     Active Substance: AMBRISENTAN
     Indication: PULMONARY ARTERIAL HYPERTENSION
     Route: 048
     Dates: start: 20100806
  2. BENAZEPRIL [Concomitant]
     Active Substance: BENAZEPRIL HYDROCHLORIDE
  3. HYDROCODONE [Concomitant]
     Active Substance: HYDROCODONE
  4. KLOR-CON [Concomitant]
     Active Substance: POTASSIUM CHLORIDE
  5. PRIMIDONE. [Concomitant]
     Active Substance: PRIMIDONE
  6. CYMBALTA [Concomitant]
     Active Substance: DULOXETINE HYDROCHLORIDE
  7. VITAMIN D [Concomitant]
     Active Substance: CHOLECALCIFEROL
  8. ACYCLOVIR. [Concomitant]
     Active Substance: ACYCLOVIR
  9. COUMADIN [Concomitant]
     Active Substance: WARFARIN SODIUM
  10. NITROGLYCERINE [Concomitant]
     Active Substance: NITROGLYCERIN
  11. CARTIA XT [Concomitant]
     Active Substance: DILTIAZEM HYDROCHLORIDE
  12. PULMICORT TURBUHALER [Concomitant]
     Active Substance: BUDESONIDE
  13. FUROSEMIDE. [Concomitant]
     Active Substance: FUROSEMIDE
  14. ADVAIR HFA [Concomitant]
     Active Substance: FLUTICASONE PROPIONATE\SALMETEROL XINAFOATE
  15. CREON [Concomitant]
     Active Substance: PANCRELIPASE AMYLASE\PANCRELIPASE LIPASE\PANCRELIPASE PROTEASE
  16. GAS-X WITH MAALOX [Concomitant]
  17. ACIPHEX [Concomitant]
     Active Substance: RABEPRAZOLE SODIUM
  18. PHENERGAN-CODEINE [Concomitant]
  19. AUGMENTIN [Concomitant]
     Active Substance: AMOXICILLIN\CLAVULANATE POTASSIUM
  20. LIPITOR [Concomitant]
     Active Substance: ATORVASTATIN CALCIUM
  21. DULCOLAX [Concomitant]
     Active Substance: BISACODYL OR DOCUSATE SODIUM
  22. SYNTHROID [Concomitant]
     Active Substance: LEVOTHYROXINE SODIUM
  23. FERROUS SULFATE [Concomitant]
     Active Substance: FERROUS SULFATE\FERROUS SULFATE, DRIED
  24. ATROVENT [Concomitant]
     Active Substance: IPRATROPIUM BROMIDE
  25. ACTONEL [Concomitant]
     Active Substance: RISEDRONATE SODIUM
  26. ZOVIRAX [Concomitant]
     Active Substance: ACYCLOVIR
  27. LORAZEPAM. [Concomitant]
     Active Substance: LORAZEPAM
  28. AF-TUSSIN [Concomitant]
  29. ALBUTEROL. [Concomitant]
     Active Substance: ALBUTEROL
  30. LACTULOSE. [Concomitant]
     Active Substance: LACTULOSE
  31. PROMETH [Concomitant]
     Active Substance: PROMETHAZINE HYDROCHLORIDE
  32. VITAMIN C [Concomitant]
     Active Substance: ASCORBIC ACID
  33. SUPER B COMPLEX [Concomitant]
     Active Substance: CYANOCOBALAMIN\DEXPANTHENOL\NIACINAMIDE\PYRIDOXINE HYDROCHLORIDE\RIBOFLAVIN 5^-PHOSPHATE SODIUM\THIAMINE HYDROCHLORIDE\VITAMIN B COMPLEX

REACTIONS (1)
  - Insomnia [Unknown]
